FAERS Safety Report 7873294-8 (Version None)
Quarter: 2011Q4

REPORT INFORMATION
  Report Type: 
  Country: None (occurrence: None)
  Receive Date: 20111030
  Receipt Date: 20110503
  Transmission Date: 20120403
  Serious: No
  Sender: FDA-Public Use
  Company Number: US-AMGEN-USASP2011022848

PATIENT
  Age: 80 Year
  Sex: Female
  Weight: 86.168 kg

DRUGS (3)
  1. ENBREL [Suspect]
     Indication: PRODUCT USED FOR UNKNOWN INDICATION
     Dosage: 25 MG, QWK
     Route: 058
  2. NEURONTIN [Concomitant]
     Dosage: 100 MG, UNK
     Route: 048
  3. SYNTHROID [Concomitant]
     Dosage: 88 A?G, UNK
     Route: 048

REACTIONS (2)
  - CHEST PAIN [None]
  - HERPES ZOSTER [None]
